FAERS Safety Report 9431943 (Version 1)
Quarter: 2013Q3

REPORT INFORMATION
  Report Type: Spontaneous
  Country: US (occurrence: US)
  Receive Date: 20130731
  Receipt Date: 20130731
  Transmission Date: 20140515
  Serious: Yes (Hospitalization)
  Sender: FDA-Public Use
  Company Number: US-BRISTOL-MYERS SQUIBB COMPANY-19152503

PATIENT
  Sex: 0

DRUGS (2)
  1. LOVENOX [Suspect]
  2. COUMADIN [Suspect]

REACTIONS (1)
  - Hospitalisation [Unknown]
